FAERS Safety Report 15299176 (Version 1)
Quarter: 2018Q3

REPORT INFORMATION
  Report Type: Spontaneous
  Country: DE (occurrence: DE)
  Receive Date: 20180821
  Receipt Date: 20180821
  Transmission Date: 20181010
  Serious: Yes (Hospitalization)
  Sender: FDA-Public Use
  Company Number: DE-ACCORD-070926

PATIENT
  Age: 62 Year
  Sex: Male
  Weight: 91 kg

DRUGS (9)
  1. METOPROLOL. [Suspect]
     Active Substance: METOPROLOL
     Indication: PRODUCT USED FOR UNKNOWN INDICATION
     Dosage: 100 MG, 1?0?1?0
     Route: 048
  2. METAMIZOLE SODIUM [Concomitant]
     Active Substance: METAMIZOLE SODIUM
     Dosage: 500 MG, REQUIREMENT
     Route: 048
  3. LORAZEPAM. [Suspect]
     Active Substance: LORAZEPAM
     Indication: PRODUCT USED FOR UNKNOWN INDICATION
     Dosage: 1 MG, REQUIREMENT
     Route: 048
  4. PHENPROCOUMON [Concomitant]
     Active Substance: PHENPROCOUMON
     Dosage: 3 MG, 1?0?0?0
     Route: 048
  5. AMLODIPINE [Suspect]
     Active Substance: AMLODIPINE BESYLATE
     Indication: PRODUCT USED FOR UNKNOWN INDICATION
     Dosage: 5 MG, 1?0?0?0
     Route: 048
  6. MIRTAZAPINE. [Suspect]
     Active Substance: MIRTAZAPINE
     Indication: PRODUCT USED FOR UNKNOWN INDICATION
     Dosage: 45 MG, 0?0?1?1
     Route: 048
  7. PANTOPRAZOLE [Concomitant]
     Active Substance: PANTOPRAZOLE
     Dosage: 40 MG, 1?0?0?0
     Route: 048
  8. EZETIMIBE. [Concomitant]
     Active Substance: EZETIMIBE
     Dosage: 10/40 MG, 0?0?1?0
     Route: 048
  9. ENALAPRIL [Suspect]
     Active Substance: ENALAPRIL
     Indication: PRODUCT USED FOR UNKNOWN INDICATION
     Dosage: 10 MG, 1?0?1?0
     Route: 048

REACTIONS (4)
  - Speech disorder [Unknown]
  - Dizziness [Unknown]
  - Chest discomfort [Unknown]
  - Syncope [Unknown]
